FAERS Safety Report 8821918 (Version 1)
Quarter: 2012Q4

REPORT INFORMATION
  Report Type: 
  Country: TW (occurrence: TW)
  Receive Date: 20121003
  Receipt Date: 20121003
  Transmission Date: 20130627
  Serious: Yes (Death, Hospitalization)
  Sender: FDA-Public Use
  Company Number: TW-PAR PHARMACEUTICAL, INC-2012SCPR004631

PATIENT

DRUGS (2)
  1. METRONIDAZOLE [Suspect]
     Indication: ANTIBIOTIC PROPHYLAXIS
     Dosage: total dose of 41.25 g
     Route: 065
  2. METRONIDAZOLE [Suspect]
     Indication: ABDOMINAL INFECTION

REACTIONS (4)
  - Death [Fatal]
  - Toxic encephalopathy [Unknown]
  - Organ failure [Unknown]
  - Sepsis [Unknown]
